FAERS Safety Report 9419045 (Version 2)
Quarter: 2013Q3

REPORT INFORMATION
  Report Type: Spontaneous
  Country: MX (occurrence: MX)
  Receive Date: 20130725
  Receipt Date: 20130910
  Transmission Date: 20140515
  Serious: Yes (Other)
  Sender: FDA-Public Use
  Company Number: PHHY2013MX078729

PATIENT
  Age: 61 Year
  Sex: Female

DRUGS (2)
  1. DIOVAN [Suspect]
     Indication: HYPERTENSION
     Dosage: 1 DF, (80 MG) DAILY
     Route: 048
     Dates: start: 201110, end: 20120806
  2. DIOVAN [Suspect]
     Dosage: 2 DF, (80 MG) DAILY
     Route: 048
     Dates: start: 20120806

REACTIONS (4)
  - Haemorrhage [Recovered/Resolved]
  - Nutritional condition abnormal [Recovered/Resolved]
  - Eating disorder [Unknown]
  - Blood pressure increased [Recovered/Resolved]
